FAERS Safety Report 18898482 (Version 1)
Quarter: 2021Q1

REPORT INFORMATION
  Report Type: Report from Study
  Country: US (occurrence: US)
  Receive Date: 20210216
  Receipt Date: 20210216
  Transmission Date: 20210420
  Serious: Yes (Hospitalization, Other)
  Sender: FDA-Public Use
  Company Number: US-TAKEDA-2020TUS044486

PATIENT
  Sex: Female

DRUGS (1)
  1. HUMAN NORMAL IMMUNOGLOBULIN; LIQUID [Suspect]
     Active Substance: HUMAN IMMUNOGLOBULIN G
     Indication: PRIMARY IMMUNODEFICIENCY SYNDROME
     Dosage: UNK
     Route: 058
     Dates: end: 2013

REACTIONS (7)
  - Contusion [None]
  - Fall [Unknown]
  - Cardiac failure [Unknown]
  - Infusion site rash [Unknown]
  - Lung disorder [Unknown]
  - Asthenia [Unknown]
  - Malaise [Unknown]
